FAERS Safety Report 7955418-7 (Version None)
Quarter: 2011Q4

REPORT INFORMATION
  Report Type: 
  Country: None (occurrence: None)
  Receive Date: 20111202
  Receipt Date: 20111128
  Transmission Date: 20120403
  Serious: Yes (Hospitalization)
  Sender: FDA-Public Use
  Company Number: DE-ROCHE-1017530

PATIENT
  Age: 55 Year
  Sex: Female

DRUGS (6)
  1. MABTHERA [Suspect]
     Indication: RHEUMATOID ARTHRITIS
     Route: 065
     Dates: start: 20071001, end: 20081101
  2. PREDNISOLONE [Concomitant]
  3. SIMVASTATIN [Concomitant]
  4. RAMIPRIL [Concomitant]
  5. METHOTREXATE SODIUM [Concomitant]
  6. METOPROLOL SUCCINATE [Concomitant]

REACTIONS (1)
  - LUNG ADENOCARCINOMA [None]
